FAERS Safety Report 5452325-9 (Version None)
Quarter: 2007Q3

REPORT INFORMATION
  Report Type: 
  Country: None (occurrence: None)
  Receive Date: 20070914
  Receipt Date: 20070905
  Transmission Date: 20080115
  Serious: Yes (Other)
  Sender: FDA-Public Use
  Company Number: US-JNJFOC-20070901323

PATIENT
  Sex: Female
  Weight: 57.61 kg

DRUGS (12)
  1. DURAGESIC-100 [Suspect]
     Route: 062
  2. DURAGESIC-100 [Suspect]
     Indication: PAIN
     Route: 062
  3. NEURONTIN [Concomitant]
     Indication: NEUROPATHY
     Route: 048
  4. TOPAMAX [Concomitant]
     Indication: NEURALGIA
     Route: 048
  5. DITROPAN [Concomitant]
     Indication: BLADDER DISORDER
     Route: 048
  6. PAXIL [Concomitant]
     Indication: DEPRESSION
     Route: 048
  7. IPRATROPIUM BROMIDE [Concomitant]
     Indication: ASTHMA
     Route: 055
  8. ALBUTEROL [Concomitant]
     Indication: ASTHMA
     Route: 055
  9. THEOPHYLLINE [Concomitant]
     Indication: ASTHMA
     Route: 048
  10. XANAX [Concomitant]
     Indication: ANXIETY
     Dosage: AS NEEDED
     Route: 048
  11. PROVENTIL [Concomitant]
     Indication: ASTHMA
     Route: 055
  12. LEVAQUIN [Concomitant]
     Indication: URINARY TRACT INFECTION
     Dosage: AS NEEDED
     Route: 048

REACTIONS (7)
  - APPLICATION SITE ERYTHEMA [None]
  - APPLICATION SITE PRURITUS [None]
  - APPLICATION SITE RASH [None]
  - INAPPROPRIATE SCHEDULE OF DRUG ADMINISTRATION [None]
  - INTENTIONAL DRUG MISUSE [None]
  - ROTATOR CUFF SYNDROME [None]
  - WRONG TECHNIQUE IN DRUG USAGE PROCESS [None]
